FAERS Safety Report 10013878 (Version 1)
Quarter: 2014Q1

REPORT INFORMATION
  Report Type: Report from Study
  Country: CN (occurrence: CN)
  Receive Date: 20140316
  Receipt Date: 20140316
  Transmission Date: 20141002
  Serious: Yes (Death, Hospitalization)
  Sender: FDA-Public Use
  Company Number: CN-MYLANLABS-2014S1005033

PATIENT
  Age: 53 Year
  Sex: Male

DRUGS (2)
  1. MELPHALAN [Suspect]
     Indication: PLASMA CELL MYELOMA
     Route: 065
  2. THALIDOMIDE [Suspect]
     Indication: PLASMA CELL MYELOMA
     Route: 065

REACTIONS (2)
  - Listeriosis [Fatal]
  - Loss of consciousness [Unknown]
